FAERS Safety Report 14339974 (Version 1)
Quarter: 2017Q4

REPORT INFORMATION
  Report Type: Spontaneous
  Country: US (occurrence: US)
  Receive Date: 20171231
  Receipt Date: 20171231
  Transmission Date: 20180321
  Serious: Yes (Hospitalization, Other)
  Sender: FDA-Public Use
  Company Number: US-TEVA-2017-US-839593

PATIENT
  Sex: Female

DRUGS (1)
  1. PHENTERMINE. [Suspect]
     Active Substance: PHENTERMINE
     Indication: WEIGHT DECREASED
     Dates: start: 201108, end: 201410

REACTIONS (8)
  - Headache [Unknown]
  - Hospitalisation [Unknown]
  - Anxiety [Unknown]
  - Migraine [Unknown]
  - Emotional distress [Unknown]
  - Neurotoxicity [Unknown]
  - Brain injury [Unknown]
  - Amphetamines positive [Unknown]
